FAERS Safety Report 19829559 (Version 1)
Quarter: 2021Q3

REPORT INFORMATION
  Report Type: Spontaneous
  Country: NL (occurrence: NL)
  Receive Date: 20210914
  Receipt Date: 20210914
  Transmission Date: 20211014
  Serious: Yes (Other)
  Sender: FDA-Public Use
  Company Number: NL-MYLANLABS-2021M1062414

PATIENT
  Age: 27 Month
  Sex: Male

DRUGS (16)
  1. ISOTRETINOIN. [Suspect]
     Active Substance: ISOTRETINOIN
     Indication: NEUROBLASTOMA
     Dosage: 160 MILLIGRAM/SQ. METER, QD
     Route: 065
  2. ISOTRETINOIN. [Suspect]
     Active Substance: ISOTRETINOIN
     Dosage: 160 MILLIGRAM/SQ. METER, QD
     Route: 065
  3. SARGRAMOSTIM [Suspect]
     Active Substance: SARGRAMOSTIM
     Dosage: 250 MICROGRAM/SQ. METER, QD
     Route: 058
  4. QARZIBA [Suspect]
     Active Substance: DINUTUXIMAB BETA
     Indication: NEUROBLASTOMA
     Dosage: 20 MILLIGRAM/SQ. METER
     Route: 042
  5. INTERLEUKIN?2 [Suspect]
     Active Substance: ALDESLEUKIN
     Dosage: 3.0 X 10^6 IUINFUSION IN WEEK 1 (COURSE 2)
     Route: 042
  6. SARGRAMOSTIM [Suspect]
     Active Substance: SARGRAMOSTIM
     Indication: NEUROBLASTOMA
     Dosage: 250 MICROGRAM/SQ. METER, QD
     Route: 058
  7. ISOTRETINOIN. [Suspect]
     Active Substance: ISOTRETINOIN
     Dosage: 160 MILLIGRAM/SQ. METER, QD
     Route: 065
  8. SARGRAMOSTIM [Suspect]
     Active Substance: SARGRAMOSTIM
     Dosage: 250 MICROGRAM/SQ. METER, QD
     Route: 058
  9. QARZIBA [Suspect]
     Active Substance: DINUTUXIMAB BETA
     Dosage: 20 MILLIGRAM/SQ. METER
     Route: 042
  10. INTERLEUKIN?2 [Suspect]
     Active Substance: ALDESLEUKIN
     Indication: NEUROBLASTOMA
     Dosage: 4.5 X 10^6 IU/M2/DAY ON 5
     Route: 042
  11. QARZIBA [Suspect]
     Active Substance: DINUTUXIMAB BETA
     Dosage: 20 MILLIGRAM/SQ. METER,
     Route: 042
  12. ISOTRETINOIN. [Suspect]
     Active Substance: ISOTRETINOIN
     Dosage: 160 MILLIGRAM/SQ. METER, QD
     Route: 065
  13. QARZIBA [Suspect]
     Active Substance: DINUTUXIMAB BETA
     Dosage: 20 MILLIGRAM/SQ. METER
     Route: 042
  14. ISOTRETINOIN. [Suspect]
     Active Substance: ISOTRETINOIN
     Dosage: 160 MILLIGRAM/SQ. METER, QD
     Route: 065
  15. ISOTRETINOIN. [Suspect]
     Active Substance: ISOTRETINOIN
     Dosage: 160 MILLIGRAM/SQ. METER, QD (
     Route: 065
  16. QARZIBA [Suspect]
     Active Substance: DINUTUXIMAB BETA
     Dosage: 20 MILLIGRAM/SQ. METER
     Route: 042

REACTIONS (3)
  - Pain [Unknown]
  - Pyrexia [Unknown]
  - Dyspnoea [Unknown]
